FAERS Safety Report 11215365 (Version 2)
Quarter: 2015Q3

REPORT INFORMATION
  Report Type: Spontaneous
  Country: ES (occurrence: None)
  Receive Date: 20150622
  Receipt Date: 20150716
  Transmission Date: 20151125
  Serious: Yes (Disabling)
  Sender: FDA-Public Use
  Company Number: INT_00815_2015

PATIENT
  Age: 56 Year
  Sex: Male
  Weight: 53 kg

DRUGS (11)
  1. SMECTA [Concomitant]
     Active Substance: MONTMORILLONITE
  2. FOLIC ACID. [Concomitant]
     Active Substance: FOLIC ACID
  3. VITAMIN B12 [Concomitant]
     Active Substance: CYANOCOBALAMIN
  4. SYMBICORT [Concomitant]
     Active Substance: BUDESONIDE\FORMOTEROL FUMARATE DIHYDRATE
  5. SKENAN [Concomitant]
     Active Substance: MORPHINE SULFATE
  6. CISPLATIN (CISPLATIN) (HQ SPECIALTY) [Suspect]
     Active Substance: CISPLATIN
     Indication: NON-SMALL CELL LUNG CANCER
     Dosage: 75 MG/M2 1X/21 DAYS INTRAVENOUS
     Route: 042
     Dates: start: 20110427, end: 20110609
  7. PEMETREXED (PEMETREXED) [Suspect]
     Active Substance: PEMETREXED
     Indication: NON-SMALL CELL LUNG CANCER
     Dosage: 500 MG/M2 1X/21 DAYS INTRAVENOUS
     Route: 042
     Dates: start: 20110427, end: 20110609
  8. DEXAMETHASONE. [Concomitant]
     Active Substance: DEXAMETHASONE
  9. XANAX [Concomitant]
     Active Substance: ALPRAZOLAM
  10. RADIOTHERAPY (RADIATION) [Suspect]
     Active Substance: RADIATION THERAPY
     Indication: NON-SMALL CELL LUNG CANCER
     Dosage: 2 GY, ON DAY 1, THEN DAILY FOR 5 DAYS PER WEEK
     Dates: start: 20110609
  11. SPIRIVA [Concomitant]
     Active Substance: TIOTROPIUM BROMIDE MONOHYDRATE

REACTIONS (1)
  - Hypoacusis [None]

NARRATIVE: CASE EVENT DATE: 20110621
